FAERS Safety Report 7002543-3 (Version None)
Quarter: 2010Q3

REPORT INFORMATION
  Report Type: 
  Country: None (occurrence: None)
  Receive Date: 20100920
  Receipt Date: 20100222
  Transmission Date: 20110219
  Serious: No
  Sender: FDA-Public Use
  Company Number: US-ASTRAZENECA-2010SE07598

PATIENT
  Sex: Female
  Weight: 62.1 kg

DRUGS (15)
  1. SEROQUEL [Suspect]
     Indication: BIPOLAR DISORDER
     Route: 048
  2. SEROQUEL [Suspect]
     Indication: INSOMNIA
     Route: 048
  3. SEROQUEL [Suspect]
     Route: 048
  4. SEROQUEL [Suspect]
     Route: 048
  5. SEROQUEL [Suspect]
     Route: 048
     Dates: start: 20091201
  6. SEROQUEL [Suspect]
     Route: 048
     Dates: start: 20091201
  7. SEROQUEL [Suspect]
     Route: 048
  8. SEROQUEL [Suspect]
     Route: 048
  9. LITHIUM [Concomitant]
  10. ADVAIR DISKUS 100/50 [Concomitant]
  11. FLONASE [Concomitant]
  12. PROVENTIL [Concomitant]
  13. ALBUTEROL [Concomitant]
  14. TRAZODONE HCL [Concomitant]
  15. SINGULAIR [Concomitant]

REACTIONS (4)
  - AGGRESSION [None]
  - AMNESIA [None]
  - CHRONIC OBSTRUCTIVE PULMONARY DISEASE [None]
  - HOSTILITY [None]
